FAERS Safety Report 8887694 (Version 1)
Quarter: 2012Q4

REPORT INFORMATION
  Report Type: 
  Country: US (occurrence: US)
  Receive Date: 20121106
  Receipt Date: 20121106
  Transmission Date: 20130627
  Serious: Yes (Other)
  Sender: FDA-Public Use
  Company Number: US-AMGEN-USASP2012069282

PATIENT
  Age: 79 Year
  Sex: Female
  Weight: 51.7 kg

DRUGS (7)
  1. PROCRIT [Suspect]
     Indication: REFRACTORY CYTOPENIA WITH UNILINEAGE DYSPLASIA
     Dosage: 60000 unit, qwk
  2. NEUPOGEN [Suspect]
     Indication: LEUKOPENIA
     Dosage: UNK
     Dates: start: 200909
  3. GLUCOTROL [Concomitant]
     Dosage: UNK
  4. ARICEPT [Concomitant]
     Dosage: UNK
  5. PERIACTIN [Concomitant]
     Dosage: UNK
  6. ESTRADIOL [Concomitant]
     Dosage: UNK
  7. METOPROLOL SUCCINATE [Concomitant]
     Dosage: UNK

REACTIONS (3)
  - Deep vein thrombosis [Unknown]
  - Leukopenia [Unknown]
  - Haemoglobin decreased [Unknown]
